FAERS Safety Report 10252749 (Version 2)
Quarter: 2014Q2

REPORT INFORMATION
  Report Type: Spontaneous
  Country: BE (occurrence: BE)
  Receive Date: 20140623
  Receipt Date: 20140626
  Transmission Date: 20141212
  Serious: Yes (Other)
  Sender: FDA-Public Use
  Company Number: BE-B.I. PHARMACEUTICALS,INC./RIDGEFIELD-2014-BI-27961BL

PATIENT
  Age: 85 Year
  Sex: Female
  Weight: 74 kg

DRUGS (5)
  1. TRAJENTA [Suspect]
     Indication: DIABETES MELLITUS
     Route: 048
     Dates: start: 20140206, end: 20140528
  2. NOVONORM [Concomitant]
     Route: 048
  3. ATORVASTATINE [Concomitant]
     Route: 048
  4. ZANIDIP [Concomitant]
     Route: 048
  5. KREDEX [Concomitant]
     Route: 048

REACTIONS (1)
  - Lipase increased [Recovered/Resolved]
